FAERS Safety Report 4298981-2 (Version None)
Quarter: 2004Q1

REPORT INFORMATION
  Report Type: 
  Country: None (occurrence: None)
  Receive Date: 20040217
  Receipt Date: 20040210
  Transmission Date: 20041129
  Serious: Yes (Death)
  Sender: FDA-Public Use
  Company Number: US-JNJFOC-2004010492

PATIENT
  Age: 77 Year
  Sex: Female
  Weight: 79.3795 kg

DRUGS (4)
  1. DURAGESIC [Suspect]
     Indication: CANCER PAIN
     Dosage: SEE IMAGE
     Route: 062
     Dates: start: 20030712, end: 20030805
  2. DURAGESIC [Suspect]
     Indication: CANCER PAIN
     Dosage: SEE IMAGE
     Route: 062
     Dates: start: 20030805, end: 20030814
  3. DURAGESIC [Suspect]
     Indication: CANCER PAIN
     Dosage: SEE IMAGE
     Route: 062
     Dates: end: 20031003
  4. DURAGESIC [Suspect]
     Indication: CANCER PAIN
     Dosage: SEE IMAGE
     Route: 062
     Dates: start: 20030814

REACTIONS (1)
  - DEATH [None]
